FAERS Safety Report 24890386 (Version 1)
Quarter: 2025Q1

REPORT INFORMATION
  Report Type: Spontaneous
  Country: GB (occurrence: GB)
  Receive Date: 20250127
  Receipt Date: 20250127
  Transmission Date: 20250408
  Serious: Yes (Other)
  Sender: TORRENT PHARMA INC.
  Company Number: None

PATIENT
  Age: 30 Year
  Sex: Female
  Weight: 71 kg

DRUGS (1)
  1. LEVETIRACETAM [Suspect]
     Active Substance: LEVETIRACETAM
     Indication: Product used for unknown indication
     Dosage: 500MG TWICE A DAY
     Route: 065

REACTIONS (4)
  - Maternal exposure during breast feeding [Unknown]
  - Dizziness [Recovered/Resolved with Sequelae]
  - Vertigo [Unknown]
  - Feeling abnormal [Unknown]
